FAERS Safety Report 10301086 (Version 1)
Quarter: 2014Q3

REPORT INFORMATION
  Report Type: Spontaneous
  Country: US (occurrence: None)
  Receive Date: 20140709
  Receipt Date: 20140709
  Transmission Date: 20150326
  Serious: No
  Sender: FDA-Public Use
  Company Number: None

PATIENT
  Age: 58 Year
  Sex: Male
  Weight: 88.45 kg

DRUGS (13)
  1. ZOCOR [Concomitant]
     Active Substance: SIMVASTATIN
  2. VITAMIN C [Concomitant]
     Active Substance: ASCORBIC ACID
  3. REMICADE [Suspect]
     Active Substance: INFLIXIMAB
     Indication: CROHN^S DISEASE
     Dosage: 5MG/KG + 10MG/KG, UP TO EVERY 4 WEEKS AFTER INITIAL DOSING, BY IV
     Route: 042
     Dates: start: 20131031
  4. FLORISTOR [Concomitant]
  5. REMICADE [Concomitant]
     Active Substance: INFLIXIMAB
  6. LISINOPRIL. [Concomitant]
     Active Substance: LISINOPRIL
  7. BUT/APAP/CAF [Concomitant]
  8. CENTRUM SILVER [Concomitant]
     Active Substance: VITAMINS
  9. BENADRYL [Concomitant]
     Active Substance: DIPHENHYDRAMINE HYDROCHLORIDE
  10. CELEBREX [Concomitant]
     Active Substance: CELECOXIB
  11. RANITIDINE [Concomitant]
     Active Substance: RANITIDINE\RANITIDINE HYDROCHLORIDE
  12. HYDROXYZINE [Concomitant]
     Active Substance: HYDROXYZINE\HYDROXYZINE HYDROCHLORIDE
  13. AFRIN [Concomitant]
     Active Substance: OXYMETAZOLINE

REACTIONS (1)
  - Body temperature increased [None]

NARRATIVE: CASE EVENT DATE: 201401
